FAERS Safety Report 5839838-2 (Version None)
Quarter: 2008Q3

REPORT INFORMATION
  Report Type: 
  Country: None (occurrence: None)
  Receive Date: 20080807
  Receipt Date: 20080725
  Transmission Date: 20090109
  Serious: No
  Sender: FDA-Public Use
  Company Number: US024198

PATIENT
  Sex: Female

DRUGS (2)
  1. FENTORA [Suspect]
     Indication: CANCER PAIN
     Dosage: BUCCAL
     Route: 002
  2. FENTANYL TRANSDERMAL SYSTEM [Concomitant]

REACTIONS (2)
  - CIRCUMSTANCE OR INFORMATION CAPABLE OF LEADING TO MEDICATION ERROR [None]
  - DRUG DISPENSING ERROR [None]
